FAERS Safety Report 16271753 (Version 1)
Quarter: 2019Q2

REPORT INFORMATION
  Report Type: Spontaneous
  Country: AT (occurrence: AT)
  Receive Date: 20190503
  Receipt Date: 20190503
  Transmission Date: 20190711
  Serious: Yes (Other)
  Sender: FDA-Public Use
  Company Number: AT-CELGENEUS-AUT-20190411226

PATIENT
  Age: 79 Year
  Sex: Female

DRUGS (15)
  1. BORTEZOMIB. [Concomitant]
     Active Substance: BORTEZOMIB
     Indication: PLASMA CELL MYELOMA
     Route: 065
     Dates: start: 201712, end: 201801
  2. CORTISONE [Concomitant]
     Active Substance: CORTISONE\HYDROCORTISONE
     Indication: HYPERSENSITIVITY PNEUMONITIS
     Route: 065
  3. CORTISONE [Concomitant]
     Active Substance: CORTISONE\HYDROCORTISONE
     Indication: PREMEDICATION
  4. BORTEZOMIB. [Concomitant]
     Active Substance: BORTEZOMIB
     Route: 065
  5. DEXAMETHASONE. [Concomitant]
     Active Substance: DEXAMETHASONE
     Indication: PLASMA CELL MYELOMA
     Route: 065
     Dates: start: 201712, end: 201801
  6. DEXAMETHASONE. [Concomitant]
     Active Substance: DEXAMETHASONE
     Route: 065
  7. OCTAPLAS [Concomitant]
     Active Substance: HUMAN PLASMA
     Indication: SUPPLEMENTATION THERAPY
     Route: 065
     Dates: start: 20171222, end: 20171223
  8. ZOLEDRONATE [Concomitant]
     Active Substance: ZOLEDRONIC ACID
     Indication: PRODUCT USED FOR UNKNOWN INDICATION
     Route: 065
     Dates: start: 20160615
  9. MANNITOL. [Concomitant]
     Active Substance: MANNITOL
     Indication: ILEUS PARALYTIC
     Route: 065
  10. MANNITOL. [Concomitant]
     Active Substance: MANNITOL
     Indication: LAXATIVE SUPPORTIVE CARE
  11. REVLIMID [Suspect]
     Active Substance: LENALIDOMIDE
     Dosage: 10 MILLIGRAM
     Route: 048
     Dates: start: 20180703
  12. ALLOPURINOL. [Concomitant]
     Active Substance: ALLOPURINOL
     Indication: PRODUCT USED FOR UNKNOWN INDICATION
     Route: 065
  13. ERYTHROPOIETIN [Concomitant]
     Active Substance: ERYTHROPOIETIN
     Indication: PRODUCT USED FOR UNKNOWN INDICATION
     Route: 065
     Dates: start: 201801
  14. REVLIMID [Suspect]
     Active Substance: LENALIDOMIDE
     Indication: PLASMA CELL MYELOMA
     Dosage: 10 MILLIGRAM
     Route: 048
     Dates: start: 20180207
  15. REVLIMID [Suspect]
     Active Substance: LENALIDOMIDE
     Dosage: 15 MILLIGRAM
     Route: 048
     Dates: start: 20180228

REACTIONS (7)
  - Urinary tract infection enterococcal [Unknown]
  - Hypersensitivity pneumonitis [Unknown]
  - Atypical pneumonia [Unknown]
  - Leukopenia [Unknown]
  - Infection [Unknown]
  - Rash [Unknown]
  - Neuropathy peripheral [Unknown]
